FAERS Safety Report 6769210-2 (Version None)
Quarter: 2010Q2

REPORT INFORMATION
  Report Type: 
  Country: None (occurrence: None)
  Receive Date: 20100615
  Receipt Date: 20100603
  Transmission Date: 20101027
  Serious: Yes (Hospitalization, Other)
  Sender: FDA-Public Use
  Company Number: PHEH2008US06601

PATIENT
  Sex: Female

DRUGS (81)
  1. ZOMETA [Suspect]
     Dosage: 4 MG, UNK
     Route: 042
     Dates: start: 20050101, end: 20070601
  2. ZOMETA [Suspect]
     Dosage: 3.5 MG, UNK
  3. ZOMETA [Suspect]
     Dosage: 3.3 MG, UNK
  4. LEVOXYL [Concomitant]
  5. THALOMID [Concomitant]
  6. LORAZEPAM [Concomitant]
  7. WARFARIN [Concomitant]
  8. HYDROCODONE BITARTRATE [Concomitant]
  9. CLINDAMYCIN HYDROCHLORIDE [Concomitant]
  10. POTASSIUM CHLORIDE [Concomitant]
  11. FENTANYL [Concomitant]
  12. FUROSEMIDE [Concomitant]
  13. CYMBALTA [Concomitant]
  14. DEXAMETHASONE [Concomitant]
  15. MEPHYTON [Concomitant]
  16. NYSTATIN [Concomitant]
  17. REVLIMID [Concomitant]
     Dosage: 15 MG, UNK
  18. ULTRAM [Concomitant]
  19. METRONIDAZOLE [Concomitant]
  20. AMBIEN [Concomitant]
  21. LYRICA [Concomitant]
  22. LEXAPRO [Concomitant]
  23. IBUPROFEN [Concomitant]
  24. AZITHROMYCIN [Concomitant]
  25. OXYCODONE [Concomitant]
  26. LISINOPRIL [Concomitant]
  27. CEPHALEXIN [Concomitant]
  28. FLUCONAZOLE [Concomitant]
  29. ZOLPIDEM TARTRATE [Concomitant]
  30. NORTRIPTYLINE HYDROCHLORIDE [Concomitant]
  31. CHLORHEXIDINE GLUCONATE [Concomitant]
  32. BIOTENE [Concomitant]
  33. DARVOCET-N 100 [Concomitant]
  34. FISH OIL [Concomitant]
  35. CALCIUM CARBONATE [Concomitant]
  36. BENICAR HCT [Concomitant]
  37. LORTAB [Concomitant]
  38. LEVAQUIN [Concomitant]
  39. CELEBREX [Concomitant]
  40. TRAMADOL HCL [Concomitant]
  41. LOVENOX [Concomitant]
  42. PROPOXYPHENE [Concomitant]
  43. BENICAR [Concomitant]
  44. MUCINEX [Concomitant]
  45. DIOVAN [Concomitant]
  46. ACE INHIBITOR NOS [Concomitant]
  47. MAVIK [Concomitant]
  48. MAGIC MOUTHWASH [Concomitant]
  49. EFFEXOR [Concomitant]
  50. CHEMOTHERAPEUTICS NOS [Concomitant]
  51. TYLENOL [Concomitant]
  52. KEFZOL [Concomitant]
  53. COLACE [Concomitant]
  54. PEPCID [Concomitant]
  55. ZOFRAN [Concomitant]
  56. SOMA [Concomitant]
  57. REGLAN [Concomitant]
  58. TORADOL [Concomitant]
  59. NUBAIN [Concomitant]
  60. BENADRYL [Concomitant]
  61. MORPHINE [Concomitant]
  62. GINKGO BILOBA [Concomitant]
  63. VITAMINS [Concomitant]
  64. COUMADIN [Concomitant]
  65. EPHEDRINE SULFATE [Concomitant]
  66. ESMOLOL HCL [Concomitant]
  67. NEOSTIGMINE METHYLSULFATE [Concomitant]
  68. ONDANSETRON [Concomitant]
  69. PHENYLEPHRINE [Concomitant]
  70. ROCURONIUM BROMIDE [Concomitant]
  71. PROPOFOL [Concomitant]
  72. REMIFENTANIL [Concomitant]
  73. LOPERAMIDE [Concomitant]
  74. DESVENLAFAXINE [Concomitant]
  75. PREGABALIN [Concomitant]
  76. ACYCLOVIR [Concomitant]
  77. ENOXAPARIN SODIUM [Concomitant]
  78. PERIDEX [Concomitant]
  79. DECADRON [Concomitant]
  80. THALIDOMIDE [Concomitant]
  81. DEXAMETHASONE [Concomitant]

REACTIONS (83)
  - AGITATION [None]
  - ANXIETY [None]
  - APHTHOUS STOMATITIS [None]
  - ARTHRALGIA [None]
  - ASPHYXIA [None]
  - ASTHENIA [None]
  - AUTOLOGOUS BONE MARROW TRANSPLANTATION THERAPY [None]
  - BACK PAIN [None]
  - BONE LESION [None]
  - BONE PAIN [None]
  - CARDIAC DISORDER [None]
  - CATARACT OPERATION [None]
  - CHEST PAIN [None]
  - CONSTIPATION [None]
  - CONTUSION [None]
  - CYST [None]
  - DECREASED INTEREST [None]
  - DEEP VEIN THROMBOSIS [None]
  - DEHYDRATION [None]
  - DENTAL OPERATION [None]
  - DEPRESSED MOOD [None]
  - DIARRHOEA [None]
  - DIVERTICULITIS [None]
  - DIVERTICULUM [None]
  - DYSPHAGIA [None]
  - DYSPNOEA [None]
  - DYSPNOEA PAROXYSMAL NOCTURNAL [None]
  - ENDODONTIC PROCEDURE [None]
  - FATIGUE [None]
  - GAIT DISTURBANCE [None]
  - HAEMATEMESIS [None]
  - HOT FLUSH [None]
  - HYPOACUSIS [None]
  - HYPOAESTHESIA [None]
  - HYPOXIA [None]
  - IMPAIRED GASTRIC EMPTYING [None]
  - IMPAIRED HEALING [None]
  - INJURY [None]
  - INTERNATIONAL NORMALISED RATIO DECREASED [None]
  - INTERVERTEBRAL DISC DEGENERATION [None]
  - INTRAOCULAR LENS IMPLANT [None]
  - IRRITABLE BOWEL SYNDROME [None]
  - JOINT LOCK [None]
  - KNEE ARTHROPLASTY [None]
  - LETHARGY [None]
  - MACULOPATHY [None]
  - METASTASES TO BONE [None]
  - MUSCULOSKELETAL DISCOMFORT [None]
  - MYALGIA [None]
  - NAUSEA [None]
  - OEDEMA [None]
  - OEDEMA PERIPHERAL [None]
  - ORAL PAIN [None]
  - OSTEOARTHRITIS [None]
  - OSTEOMYELITIS [None]
  - OSTEONECROSIS OF JAW [None]
  - OTITIS MEDIA ACUTE [None]
  - PAIN [None]
  - PAIN IN EXTREMITY [None]
  - PAIN IN JAW [None]
  - PARAESTHESIA [None]
  - PERIODIC LIMB MOVEMENT DISORDER [None]
  - PULMONARY EMBOLISM [None]
  - PULMONARY HYPERTENSION [None]
  - RENAL FAILURE CHRONIC [None]
  - RIB FRACTURE [None]
  - SINUS DISORDER [None]
  - SINUSITIS [None]
  - SLEEP APNOEA SYNDROME [None]
  - SPINAL COLUMN STENOSIS [None]
  - SPINAL CORD OPERATION [None]
  - SPINAL DISORDER [None]
  - SPONDYLOLISTHESIS [None]
  - STEM CELL TRANSPLANT [None]
  - SUPRAVENTRICULAR EXTRASYSTOLES [None]
  - SWELLING [None]
  - SYNOVIAL CYST [None]
  - TENDONITIS [None]
  - THROMBOSIS [None]
  - THYROID DISORDER [None]
  - TOOTH EXTRACTION [None]
  - VENTRICULAR EXTRASYSTOLES [None]
  - WEIGHT DECREASED [None]
